FAERS Safety Report 5264580-9 (Version None)
Quarter: 2007Q1

REPORT INFORMATION
  Report Type: 
  Country: None (occurrence: None)
  Receive Date: 20070314
  Receipt Date: 20070312
  Transmission Date: 20070707
  Serious: Yes (Death, Hospitalization)
  Sender: FDA-Public Use
  Company Number: ES-BRISTOL-MYERS SQUIBB COMPANY-13609623

PATIENT
  Age: 56 Year
  Sex: Male

DRUGS (7)
  1. CISPLATIN [Suspect]
     Indication: GASTRIC CANCER
     Route: 041
     Dates: start: 20061120, end: 20061120
  2. FLUOROURACIL [Suspect]
     Indication: GASTRIC CANCER
     Route: 041
     Dates: start: 20061024, end: 20061024
  3. DURAGESIC-100 [Concomitant]
     Indication: PAIN
     Route: 062
     Dates: start: 20061021, end: 20061206
  4. ALDACTONE [Concomitant]
     Indication: HYPERTENSION
     Route: 048
     Dates: start: 20061025
  5. ZOLPIDEM TARTRATE [Concomitant]
     Indication: DEPRESSION
     Route: 048
     Dates: start: 20061025
  6. PAROXETINE HCL [Concomitant]
     Indication: DEPRESSION
     Route: 048
     Dates: start: 20061025
  7. PRITOR [Concomitant]
     Indication: HYPERTENSION
     Route: 048
     Dates: start: 20060301, end: 20061206

REACTIONS (5)
  - DEHYDRATION [None]
  - DIARRHOEA [None]
  - PNEUMONIA ASPIRATION [None]
  - SEPTIC SHOCK [None]
  - STOMATITIS [None]
